FAERS Safety Report 18440913 (Version 1)
Quarter: 2020Q4

REPORT INFORMATION
  Report Type: Spontaneous
  Country: US (occurrence: US)
  Receive Date: 20201029
  Receipt Date: 20201029
  Transmission Date: 20210114
  Serious: Yes (Other)
  Sender: FDA-Public Use
  Company Number: US-ROCHE-2704580

PATIENT
  Sex: Male

DRUGS (14)
  1. AMIODARONE HCL [Concomitant]
     Active Substance: AMIODARONE HYDROCHLORIDE
  2. KLOR-CON [Concomitant]
     Active Substance: POTASSIUM CHLORIDE
  3. L-CARNITINE [Concomitant]
     Active Substance: LEVOCARNITINE
  4. ACTOS [Concomitant]
     Active Substance: PIOGLITAZONE HYDROCHLORIDE
  5. FINASTERIDE. [Concomitant]
     Active Substance: FINASTERIDE
  6. HYDRAZINE SULFATE [Concomitant]
     Active Substance: HYDRAZINE SULFATE
  7. ZINC. [Concomitant]
     Active Substance: ZINC
  8. CARVEDILOL. [Concomitant]
     Active Substance: CARVEDILOL
  9. ERIVEDGE [Suspect]
     Active Substance: VISMODEGIB
     Indication: BASAL CELL CARCINOMA
     Route: 048
  10. ELIQUIS [Concomitant]
     Active Substance: APIXABAN
  11. FLOMAX [Concomitant]
     Active Substance: TAMSULOSIN HYDROCHLORIDE
  12. LISINOPRIL. [Concomitant]
     Active Substance: LISINOPRIL
  13. COENZYME Q10 [Concomitant]
     Active Substance: DIETARY SUPPLEMENT\UBIDECARENONE
  14. LASIX [Concomitant]
     Active Substance: FUROSEMIDE

REACTIONS (1)
  - Herpes zoster [Unknown]
